FAERS Safety Report 8330067-X (Version None)
Quarter: 2012Q2

REPORT INFORMATION
  Report Type: 
  Country: None (occurrence: None)
  Receive Date: 20120502
  Receipt Date: 20100104
  Transmission Date: 20120825
  Serious: No
  Sender: FDA-Public Use
  Company Number: US-TEVA-2010000044

PATIENT
  Sex: Female
  Weight: 70.37 kg

DRUGS (7)
  1. PROMETHAZINE [Concomitant]
     Indication: NAUSEA
     Dosage: 5.3571 MILLIGRAM;
     Dates: start: 20060101
  2. NUVIGIL [Suspect]
     Dosage: 50 MILLIGRAM;
     Route: 048
     Dates: start: 20091225
  3. NUVIGIL [Suspect]
     Indication: CHRONIC FATIGUE SYNDROME
     Dosage: 150 MILLIGRAM;
     Route: 048
     Dates: start: 20091126, end: 20091129
  4. LUNESTA [Concomitant]
  5. IBUPROFEN [Concomitant]
     Indication: MIGRAINE
     Dosage: 342.8571 MILLIGRAM;
     Dates: start: 20060101
  6. ULTRAM [Concomitant]
     Indication: MIGRAINE
     Dosage: 150 MILLIGRAM;
     Dates: start: 20090101
  7. VICODIN [Concomitant]
     Indication: MIGRAINE
     Dates: start: 20060101

REACTIONS (3)
  - CRYING [None]
  - TREMOR [None]
  - MIGRAINE [None]
